FAERS Safety Report 15328541 (Version 4)
Quarter: 2023Q4

REPORT INFORMATION
  Report Type: Report from Study
  Country: US (occurrence: US)
  Receive Date: 20180829
  Receipt Date: 20231108
  Transmission Date: 20240109
  Serious: Yes (Life-Threatening, Hospitalization, Other)
  Sender: FDA-Public Use
  Company Number: US-SHIRE-US201833282

PATIENT
  Age: 36 Year
  Sex: Female

DRUGS (1)
  1. VELAGLUCERASE ALFA [Suspect]
     Active Substance: VELAGLUCERASE ALFA
     Indication: Gaucher^s disease
     Dosage: 12 DOSAGE FORM, 2/MONTH
     Route: 042
     Dates: start: 20150312

REACTIONS (8)
  - Cerebrovascular accident [Unknown]
  - Blood iron decreased [Recovering/Resolving]
  - Haemoglobin decreased [Recovering/Resolving]
  - Migraine [Recovering/Resolving]
  - Blood pressure decreased [Recovering/Resolving]
  - Brain fog [Unknown]
  - Memory impairment [Unknown]
  - Injection site rash [Recovering/Resolving]

NARRATIVE: CASE EVENT DATE: 20180823
